FAERS Safety Report 5456203-0 (Version None)
Quarter: 2007Q3

REPORT INFORMATION
  Report Type: 
  Country: None (occurrence: None)
  Receive Date: 20070918
  Receipt Date: 20070702
  Transmission Date: 20080115
  Serious: Yes (Other)
  Sender: FDA-Public Use
  Company Number: US-ASTRAZENECA-2006UW23140

PATIENT
  Sex: Female
  Weight: 69.1 kg

DRUGS (8)
  1. SEROQUEL [Suspect]
     Indication: BIPOLAR DISORDER
     Dosage: 100-300 MG
     Route: 048
  2. SEROQUEL [Suspect]
     Indication: DEPRESSION
     Dosage: 100-300 MG
     Route: 048
  3. WELLBUTRIN [Concomitant]
  4. MORPHINE [Concomitant]
  5. SOMA [Concomitant]
  6. AMITRIPTYLINE HCL [Concomitant]
  7. PROZAC CLONIDINE [Concomitant]
  8. CLONIDINE [Concomitant]

REACTIONS (2)
  - DIABETES MELLITUS [None]
  - NEUROLEPTIC MALIGNANT SYNDROME [None]
